FAERS Safety Report 17673034 (Version 10)
Quarter: 2021Q1

REPORT INFORMATION
  Report Type: Spontaneous
  Country: IT (occurrence: IT)
  Receive Date: 20200416
  Receipt Date: 20210215
  Transmission Date: 20210419
  Serious: Yes (Death, Hospitalization)
  Sender: FDA-Public Use
  Company Number: IT-BIOGEN-2020BI00861271

PATIENT
  Age: 68 Year
  Sex: Male

DRUGS (4)
  1. TAMSULOSIN HYDROCHLORIDE. [Concomitant]
     Active Substance: TAMSULOSIN HYDROCHLORIDE
     Indication: PRODUCT USED FOR UNKNOWN INDICATION
     Route: 048
  2. TRAMADOL HYDROCHLORIDE. [Concomitant]
     Active Substance: TRAMADOL HYDROCHLORIDE
     Indication: PRODUCT USED FOR UNKNOWN INDICATION
     Route: 048
  3. TECFIDERA [Suspect]
     Active Substance: DIMETHYL FUMARATE
     Indication: SECONDARY PROGRESSIVE MULTIPLE SCLEROSIS
     Route: 048
     Dates: start: 20151020, end: 20200313
  4. CLONAZEPAM. [Concomitant]
     Active Substance: CLONAZEPAM
     Indication: PRODUCT USED FOR UNKNOWN INDICATION
     Route: 048

REACTIONS (11)
  - Coronavirus infection [Fatal]
  - Off label use [Unknown]
  - Pyrexia [Fatal]
  - Respiratory failure [Fatal]
  - COVID-19 pneumonia [Fatal]
  - COVID-19 [Fatal]
  - Hypertension [Unknown]
  - Pneumonia viral [Fatal]
  - Mixed anxiety and depressive disorder [Unknown]
  - Transient ischaemic attack [Unknown]
  - Cerebrovascular disorder [Unknown]

NARRATIVE: CASE EVENT DATE: 201510
